FAERS Safety Report 23563727 (Version 1)
Quarter: 2024Q1

REPORT INFORMATION
  Report Type: Spontaneous
  Country: US (occurrence: US)
  Receive Date: 20240226
  Receipt Date: 20240226
  Transmission Date: 20240409
  Serious: No
  Sender: FDA-Public Use
  Company Number: US-ALKEM LABORATORIES LIMITED-US-ALKEM-2023-15603

PATIENT
  Sex: Male

DRUGS (1)
  1. FINASTERIDE [Suspect]
     Active Substance: FINASTERIDE
     Indication: Alopecia
     Dosage: UNK (ONCE A DAY)
     Route: 048
     Dates: start: 202208

REACTIONS (2)
  - Sexual dysfunction [Not Recovered/Not Resolved]
  - Mental disorder [Not Recovered/Not Resolved]
